FAERS Safety Report 4327634-7 (Version None)
Quarter: 2004Q1

REPORT INFORMATION
  Report Type: 
  Country: None (occurrence: None)
  Receive Date: 20040331
  Receipt Date: 20040317
  Transmission Date: 20041129
  Serious: Yes (Other)
  Sender: FDA-Public Use
  Company Number: PHNU2004DE01303

PATIENT
  Sex: Male

DRUGS (2)
  1. VOLTAREN [Suspect]
     Dosage: 400 MG ON ONE DAY
     Route: 048
  2. ETHANOL [Suspect]
     Route: 048

REACTIONS (4)
  - AMNESIA [None]
  - DRUG INTERACTION [None]
  - OVERDOSE [None]
  - PSYCHOTIC DISORDER DUE TO A GENERAL MEDICAL CONDITION [None]
